FAERS Safety Report 4567331-6 (Version None)
Quarter: 2005Q1

REPORT INFORMATION
  Report Type: 
  Country: None (occurrence: None)
  Receive Date: 20050127
  Receipt Date: 20050111
  Transmission Date: 20050727
  Serious: Yes (Hospitalization)
  Sender: FDA-Public Use
  Company Number: 207669

PATIENT
  Age: 48 Year
  Sex: Female
  Weight: 53.5244 kg

DRUGS (2)
  1. AVONEX [Suspect]
     Indication: MULTIPLE SCLEROSIS
     Dosage: SEE IMAGE
     Route: 030
     Dates: start: 20020101, end: 20040101
  2. AVONEX [Suspect]
     Indication: MULTIPLE SCLEROSIS
     Dosage: SEE IMAGE
     Route: 030
     Dates: start: 20040701

REACTIONS (12)
  - CEREBRAL DISORDER [None]
  - DEPRESSION [None]
  - DIPLOPIA [None]
  - DIZZINESS [None]
  - HYPOAESTHESIA [None]
  - METASTASES TO NECK [None]
  - MOVEMENT DISORDER [None]
  - PARAESTHESIA [None]
  - POST PROCEDURAL COMPLICATION [None]
  - PYREXIA [None]
  - SQUAMOUS CELL CARCINOMA [None]
  - THROAT CANCER [None]
